FAERS Safety Report 16636329 (Version 1)
Quarter: 2019Q3

REPORT INFORMATION
  Report Type: Other
  Country: FR (occurrence: FR)
  Receive Date: 20190726
  Receipt Date: 20190726
  Transmission Date: 20191004
  Serious: Yes (Congenital Anomaly, Other)
  Sender: FDA-Public Use
  Company Number: FR-PRINSTON PHARMACEUTICAL INC.-2019PRN00704

PATIENT
  Age: 25 Year
  Sex: Female

DRUGS (6)
  1. LAMIVUDINE; ZIDOVUDINE [Suspect]
     Active Substance: LAMIVUDINE\ZIDOVUDINE
     Indication: HIV INFECTION
     Dosage: UNK
     Dates: start: 20050908
  2. DIDANOSINE. [Suspect]
     Active Substance: DIDANOSINE
     Indication: HIV INFECTION
     Dosage: UNK
     Dates: start: 20050523, end: 20050908
  3. EFAVIRENZ. [Suspect]
     Active Substance: EFAVIRENZ
     Indication: HIV INFECTION
     Dosage: 600 MG, 1X/DAY
     Dates: start: 20050513, end: 20050908
  4. NEVIRAPINE. [Suspect]
     Active Substance: NEVIRAPINE
     Indication: HIV INFECTION
     Dosage: 400 MG, 1X/DAY
     Dates: start: 20050704
  5. LOPINAVIR; RITONAVIR [Suspect]
     Active Substance: LOPINAVIR\RITONAVIR
     Indication: HIV INFECTION
     Dosage: UNK
     Dates: start: 20050908
  6. EMTRICITABINE [Suspect]
     Active Substance: EMTRICITABINE
     Indication: HIV INFECTION
     Dosage: UNK
     Dates: start: 20050523

REACTIONS (3)
  - Brain herniation [Recovered/Resolved]
  - Exposure during pregnancy [Recovered/Resolved]
  - Spina bifida [Recovered/Resolved]

NARRATIVE: CASE EVENT DATE: 20050813
